FAERS Safety Report 17142213 (Version 3)
Quarter: 2020Q1

REPORT INFORMATION
  Report Type: Report from Study
  Country: US (occurrence: US)
  Receive Date: 20191211
  Receipt Date: 20200219
  Transmission Date: 20200409
  Serious: Yes (Hospitalization)
  Sender: FDA-Public Use
  Company Number: US-SHIRE-US201942272

PATIENT
  Sex: Male
  Weight: 92.52 kg

DRUGS (1)
  1. TEDUGLUTIDE [Suspect]
     Active Substance: TEDUGLUTIDE
     Indication: SHORT-BOWEL SYNDROME
     Dosage: 0.5 MILLILITER, 1X/DAY:QD
     Route: 058
     Dates: start: 20161103

REACTIONS (3)
  - Electrolyte imbalance [Unknown]
  - Muscle spasms [Recovered/Resolved]
  - Hospitalisation [Unknown]
